FAERS Safety Report 8922667 (Version 1)
Quarter: 2012Q4

REPORT INFORMATION
  Report Type: 
  Country: US (occurrence: US)
  Receive Date: 20121123
  Receipt Date: 20121123
  Transmission Date: 20130627
  Serious: No
  Sender: FDA-Public Use
  Company Number: US-PFIZER INC-2012291798

PATIENT
  Age: 36 Year
  Sex: Female
  Weight: 83.9 kg

DRUGS (3)
  1. LYRICA [Suspect]
     Indication: NERVE PAIN
     Dosage: 75 mg, daily
     Dates: start: 201207
  2. LYRICA [Suspect]
     Dosage: 75 mg, 3x/day
     Dates: start: 2012
  3. LYRICA [Suspect]
     Dosage: 150 mg, 2x/day
     Dates: start: 2012, end: 20121102

REACTIONS (3)
  - Drug intolerance [Unknown]
  - Activities of daily living impaired [Unknown]
  - Inappropriate schedule of drug administration [Unknown]
